FAERS Safety Report 5121596-0 (Version None)
Quarter: 2006Q4

REPORT INFORMATION
  Report Type: 
  Country: None (occurrence: None)
  Receive Date: 20061003
  Receipt Date: 20060920
  Transmission Date: 20070319
  Serious: Yes (Life-Threatening, Hospitalization, Other)
  Sender: FDA-Public Use
  Company Number: 2006SP002587

PATIENT
  Age: 47 Year
  Sex: Male
  Weight: 91 kg

DRUGS (1)
  1. PEG-INTRON [Suspect]
     Indication: HEPATITIS C
     Dosage: SEE IMAGE
     Route: 058
     Dates: start: 20051224

REACTIONS (5)
  - ABSCESS [None]
  - ARTHRALGIA [None]
  - PYREXIA [None]
  - SPINAL DISORDER [None]
  - TREATMENT NONCOMPLIANCE [None]
